FAERS Safety Report 12967033 (Version 1)
Quarter: 2016Q4

REPORT INFORMATION
  Report Type: Spontaneous
  Country: DE (occurrence: DE)
  Receive Date: 20161123
  Receipt Date: 20161123
  Transmission Date: 20170207
  Serious: Yes (Other)
  Sender: FDA-Public Use
  Company Number: DE-SUN PHARMACEUTICAL INDUSTRIES LTD-2016RR-127869

PATIENT
  Age: 5 Month
  Sex: Female
  Weight: 6 kg

DRUGS (2)
  1. CEFUROXIM [Suspect]
     Active Substance: CEFUROXIME
     Indication: SOFT TISSUE INFECTION
     Dosage: 62.5 MG, BID
     Route: 048
  2. ZYMAFLUOR D 500 [Concomitant]
     Indication: PROPHYLAXIS
     Dosage: 1 DF, DAILY
     Route: 048

REACTIONS (1)
  - Ulcerated haemangioma [Recovered/Resolved]

NARRATIVE: CASE EVENT DATE: 20160607
